FAERS Safety Report 8232378-5 (Version None)
Quarter: 2012Q1

REPORT INFORMATION
  Report Type: 
  Country: None (occurrence: None)
  Receive Date: 20120323
  Receipt Date: 20120321
  Transmission Date: 20120608
  Serious: Yes (Other)
  Sender: FDA-Public Use
  Company Number: JP-GLAXOSMITHKLINE-B0785564A

PATIENT
  Sex: Male

DRUGS (2)
  1. RELENZA [Suspect]
     Indication: INFLUENZA
     Dosage: 20MG PER DAY
     Route: 055
     Dates: start: 20120224, end: 20120227
  2. CHINESE MEDICINE [Suspect]
     Indication: PRODUCT USED FOR UNKNOWN INDICATION
     Route: 048
     Dates: start: 20120224, end: 20120226

REACTIONS (7)
  - CONVULSION [None]
  - MEMORY IMPAIRMENT [None]
  - SLEEP TERROR [None]
  - LOSS OF CONSCIOUSNESS [None]
  - SCREAMING [None]
  - DELIRIUM [None]
  - ABNORMAL BEHAVIOUR [None]
